FAERS Safety Report 15546566 (Version 3)
Quarter: 2018Q4

REPORT INFORMATION
  Report Type: Spontaneous
  Country: US (occurrence: US)
  Receive Date: 20181024
  Receipt Date: 20181207
  Transmission Date: 20190205
  Serious: No
  Sender: FDA-Public Use
  Company Number: US-ASTRAZENECA-2018SF28854

PATIENT
  Age: 59 Year
  Sex: Male
  Weight: 77.1 kg

DRUGS (5)
  1. PIOGLITAZONE. [Concomitant]
     Active Substance: PIOGLITAZONE
     Indication: DIABETES MELLITUS
  2. BYDUREON [Suspect]
     Active Substance: EXENATIDE
     Indication: GLYCOSYLATED HAEMOGLOBIN INCREASED
     Route: 058
     Dates: start: 2016, end: 201803
  3. FORTAMET XR [Concomitant]
     Indication: DIABETES MELLITUS
  4. CRESTOR [Suspect]
     Active Substance: ROSUVASTATIN CALCIUM
     Indication: BLOOD CHOLESTEROL INCREASED
     Route: 048
     Dates: start: 2013
  5. BYDUREON BCISE [Suspect]
     Active Substance: EXENATIDE
     Indication: DIABETES MELLITUS
     Route: 058
     Dates: start: 201803, end: 20180830

REACTIONS (8)
  - Injection site extravasation [Not Recovered/Not Resolved]
  - Intentional device misuse [Unknown]
  - Injection site mass [Recovering/Resolving]
  - Injection site nodule [Unknown]
  - Glycosylated haemoglobin abnormal [Unknown]
  - Device malfunction [Unknown]
  - Product dose omission [Unknown]
  - Injection site haemorrhage [Recovered/Resolved]

NARRATIVE: CASE EVENT DATE: 2016
